FAERS Safety Report 5997147-5 (Version None)
Quarter: 2008Q4

REPORT INFORMATION
  Report Type: 
  Country: None (occurrence: None)
  Receive Date: 20081212
  Receipt Date: 20081104
  Transmission Date: 20090506
  Serious: No
  Sender: FDA-Public Use
  Company Number: US-ABBOTT-08P-163-0485440-00

PATIENT
  Sex: Female
  Weight: 83.082 kg

DRUGS (3)
  1. HUMIRA [Suspect]
     Indication: PSORIASIS
     Route: 058
     Dates: start: 20080801
  2. TOPICAL CREAMS [Concomitant]
     Indication: PSORIASIS
     Route: 061
  3. TETRIX [Concomitant]
     Indication: PSORIASIS
     Route: 061

REACTIONS (1)
  - INCORRECT DOSE ADMINISTERED [None]
